FAERS Safety Report 6069207-4 (Version None)
Quarter: 2009Q1

REPORT INFORMATION
  Report Type: 
  Country: None (occurrence: None)
  Receive Date: 20090206
  Receipt Date: 20090126
  Transmission Date: 20090719
  Serious: Yes (Disabling, Other)
  Sender: FDA-Public Use
  Company Number: BR-PFIZER INC-2009152532

PATIENT

DRUGS (13)
  1. LIPITOR [Suspect]
     Indication: BLOOD CHOLESTEROL INCREASED
     Dosage: 10 MG, UNK
     Route: 048
     Dates: start: 20010101, end: 20030101
  2. MIANTREX [Suspect]
     Dosage: UNK
     Dates: start: 20050101
  3. METHOTREXATE SODIUM [Suspect]
     Dosage: UNK
  4. AVANDIA [Concomitant]
  5. GLIOTEN [Concomitant]
  6. NOVONORM [Concomitant]
     Dosage: UNK
     Dates: start: 20000101
  7. VITAMIN B [Concomitant]
     Dosage: UNK
     Dates: start: 20060101
  8. LOSARTAN POTASSIUM [Concomitant]
     Dosage: UNK
     Dates: start: 20080701
  9. CALCORT [Concomitant]
     Dosage: UNK
     Route: 048
     Dates: start: 20030101
  10. METFORMIN [Concomitant]
  11. ENALAPRIL [Concomitant]
  12. GLIBENCLAMIDE [Concomitant]
  13. SULFONAMIDES, UREA DERIVATIVES [Concomitant]

REACTIONS (10)
  - ANOREXIA [None]
  - BLOOD CREATINE PHOSPHOKINASE INCREASED [None]
  - FALL [None]
  - FOOT FRACTURE [None]
  - MUSCLE NECROSIS [None]
  - MUSCULOSKELETAL PAIN [None]
  - NAUSEA [None]
  - POLYMYOSITIS [None]
  - UPPER LIMB FRACTURE [None]
  - WEIGHT DECREASED [None]
